FAERS Safety Report 5034801-6 (Version None)
Quarter: 2006Q2

REPORT INFORMATION
  Report Type: 
  Country: None (occurrence: None)
  Receive Date: 20060509
  Receipt Date: 20050720
  Transmission Date: 20061013
  Serious: Yes (Hospitalization)
  Sender: FDA-Public Use
  Company Number: 411569

PATIENT
  Age: 43 Year
  Sex: Female

DRUGS (1)
  1. NAPROXEN [Suspect]
     Indication: BACK PAIN

REACTIONS (1)
  - TOXIC EPIDERMAL NECROLYSIS [None]
